FAERS Safety Report 6243466-7 (Version None)
Quarter: 2009Q2

REPORT INFORMATION
  Report Type: 
  Country: None (occurrence: None)
  Receive Date: 20090624
  Receipt Date: 20090618
  Transmission Date: 20091009
  Serious: Yes (Other)
  Sender: FDA-Public Use
  Company Number: US-AVENTIS-200915377US

PATIENT
  Sex: Female

DRUGS (7)
  1. LANTUS [Suspect]
     Indication: TYPE 2 DIABETES MELLITUS
     Dosage: DOSE: 35 UNITS IN AM AND10 UNITS IN PM
     Route: 058
  2. OPTICLIK GREY [Suspect]
     Indication: TYPE 2 DIABETES MELLITUS
     Dosage: DOSE: UNK
  3. HYZAAR [Concomitant]
     Dosage: DOSE: UNK
  4. LIPITOR [Concomitant]
     Dosage: DOSE: UNK
  5. GLYBURIDE [Concomitant]
     Dosage: DOSE: UNK
  6. VITAMINS [Concomitant]
     Dosage: DOSE: UNK
  7. GABAPENTIN [Concomitant]
     Dosage: DOSE: UNK

REACTIONS (2)
  - BLOOD GLUCOSE INCREASED [None]
  - CATARACT [None]
